FAERS Safety Report 22239288 (Version 1)
Quarter: 2023Q2

REPORT INFORMATION
  Report Type: Spontaneous
  Country: GB (occurrence: GB)
  Receive Date: 20230421
  Receipt Date: 20230421
  Transmission Date: 20230721
  Serious: Yes (Death, Other)
  Sender: FDA-Public Use
  Company Number: GB-GLAXOSMITHKLINE-G0005696A

PATIENT

DRUGS (15)
  1. SALMETEROL XINAFOATE [Suspect]
     Active Substance: SALMETEROL XINAFOATE
     Indication: Asthma
     Dosage: 50 UG, BID
     Route: 055
     Dates: start: 19910116, end: 19910209
  2. VENTOLIN [Suspect]
     Active Substance: ALBUTEROL SULFATE
     Indication: Asthma
     Dosage: 8 DF, QD
     Route: 048
     Dates: start: 19860514, end: 19910209
  3. VENTOLIN [Suspect]
     Active Substance: ALBUTEROL SULFATE
     Dosage: 2 DF, QD ((2 AT NIGHT))
     Route: 048
     Dates: start: 199005, end: 19910115
  4. BECLOMETHASONE DIPROPIONATE [Suspect]
     Active Substance: BECLOMETHASONE DIPROPIONATE
     Indication: Asthma
     Dosage: 8 DF, QD
     Route: 055
     Dates: start: 19880115, end: 19910209
  5. PREDNISOLONE [Suspect]
     Active Substance: PREDNISOLONE
     Indication: Asthma
     Dosage: 4 MG
     Route: 048
  6. NITROLINGUAL [Suspect]
     Active Substance: NITROGLYCERIN
     Indication: Asthma
     Dosage: 15 DF, QD
     Route: 048
     Dates: start: 19850619, end: 19910209
  7. ADALAT [Suspect]
     Active Substance: NIFEDIPINE
     Indication: Hypertension
     Dosage: 20 DF
     Route: 048
     Dates: start: 19861203, end: 19910209
  8. DIGOXIN [Suspect]
     Active Substance: DIGOXIN
     Indication: Cardiac failure congestive
     Dosage: 125 UG
     Route: 048
     Dates: start: 19900618, end: 19910209
  9. AMILORIDE HYDROCHLORIDE\FUROSEMIDE [Suspect]
     Active Substance: AMILORIDE HYDROCHLORIDE\FUROSEMIDE
     Indication: Cardiac failure congestive
     Dosage: 1 DF, QD
     Route: 048
     Dates: start: 19900618, end: 19910209
  10. CAPTOPRIL [Suspect]
     Active Substance: CAPTOPRIL
     Indication: Cardiac failure congestive
     Dosage: 12.5 MG, BID
     Route: 065
     Dates: start: 19900704, end: 19910209
  11. ASPIRIN [Suspect]
     Active Substance: ASPIRIN
     Indication: Prophylaxis
     Dosage: 75 MG, QD
     Route: 048
     Dates: start: 19900704
  12. ISOSORBIDE MONONITRATE [Suspect]
     Active Substance: ISOSORBIDE MONONITRATE
     Indication: Hypertension
     Dosage: 1 DF, QD
     Route: 065
     Dates: start: 19900704, end: 19910209
  13. SEREVENT DISKUS [Suspect]
     Active Substance: SALMETEROL XINAFOATE
     Indication: Product used for unknown indication
     Dosage: 1 DF, QD
     Route: 065
     Dates: start: 19910116, end: 19910209
  14. VOLMAX [Concomitant]
     Active Substance: ALBUTEROL SULFATE
     Indication: Asthma
     Dosage: 2 DF
     Route: 048
     Dates: start: 19900508, end: 19910115
  15. ALBUTEROL SULFATE [Concomitant]
     Active Substance: ALBUTEROL SULFATE
     Indication: Product used for unknown indication
     Dosage: 8 PUFF(S)
     Route: 055
     Dates: start: 19860514, end: 19910209

REACTIONS (1)
  - Death [Fatal]

NARRATIVE: CASE EVENT DATE: 19910209
